FAERS Safety Report 12165984 (Version 4)
Quarter: 2019Q4

REPORT INFORMATION
  Report Type: Spontaneous
  Country: FR (occurrence: FR)
  Receive Date: 20160309
  Receipt Date: 20191216
  Transmission Date: 20200122
  Serious: Yes (Congenital Anomaly, Other)
  Sender: FDA-Public Use
  Company Number: FR-ABBVIE-16P-056-1577238-00

PATIENT
  Sex: Male

DRUGS (3)
  1. DEPAKINE [Suspect]
     Active Substance: VALPROATE SODIUM
     Indication: MATERNAL EXPOSURE TIMING UNSPECIFIED
     Route: 064
     Dates: start: 199402, end: 19941029
  2. CARBAMAZEPINE. [Suspect]
     Active Substance: CARBAMAZEPINE
     Indication: PRODUCT USED FOR UNKNOWN INDICATION
     Route: 064
     Dates: start: 199402, end: 19941029
  3. TARDYFERON B9 [Concomitant]
     Active Substance: FERROUS SULFATE\FOLIC ACID\GASTRIC MUCIN
     Indication: PRODUCT USED FOR UNKNOWN INDICATION

REACTIONS (31)
  - Behaviour disorder [Not Recovered/Not Resolved]
  - Erectile dysfunction [Unknown]
  - Dyscalculia [Unknown]
  - Labyrinthine fistula [Unknown]
  - Sleep apnoea syndrome [Unknown]
  - Aggression [Unknown]
  - Hypoacusis [Unknown]
  - Speech disorder developmental [Unknown]
  - Intellectual disability [Unknown]
  - Pyelonephritis [Unknown]
  - Urinary tract infection [Unknown]
  - Cholesteatoma [Unknown]
  - Constipation [Unknown]
  - Penis disorder [Unknown]
  - Developmental delay [Unknown]
  - Congenital anomaly [Not Recovered/Not Resolved]
  - Urinary hesitation [Unknown]
  - Astigmatism [Unknown]
  - Mental impairment [Unknown]
  - Asthma [Unknown]
  - Obesity [Unknown]
  - Depression [Unknown]
  - Myopia [Unknown]
  - Urine flow decreased [Unknown]
  - Skin striae [Unknown]
  - Hypospadias [Recovered/Resolved]
  - Bronchitis [Unknown]
  - Ear infection [Unknown]
  - Bulimia nervosa [Unknown]
  - Foetal exposure during pregnancy [Unknown]
  - Congenital neurological disorder [Not Recovered/Not Resolved]
